FAERS Safety Report 5700730-5 (Version None)
Quarter: 2008Q2

REPORT INFORMATION
  Report Type: 
  Country: None (occurrence: None)
  Receive Date: 20080410
  Receipt Date: 20080225
  Transmission Date: 20081010
  Serious: No
  Sender: FDA-Public Use
  Company Number: A0706377A

PATIENT
  Age: 65 Year
  Sex: Female
  Weight: 76.4 kg

DRUGS (2)
  1. TYKERB [Suspect]
     Indication: BREAST CANCER
     Dosage: 1250MG PER DAY
     Route: 048
     Dates: start: 20070927, end: 20080110
  2. NO CONCURRENT MEDICATION [Concomitant]

REACTIONS (3)
  - CATHETER SITE ERYTHEMA [None]
  - RADIATION INJURY [None]
  - SKIN TEST POSITIVE [None]
